FAERS Safety Report 13594741 (Version 1)
Quarter: 2017Q2

REPORT INFORMATION
  Report Type: Other
  Country: GB (occurrence: ET)
  Receive Date: 20170530
  Receipt Date: 20170530
  Transmission Date: 20170830
  Serious: Yes (Life-Threatening, Other)
  Sender: FDA-Public Use
  Company Number: ET-INTERNATIONAL MEDICATION SYSTEMS, LIMITED-2021400

PATIENT
  Age: 60 Year
  Sex: Male

DRUGS (5)
  1. LIDOCAINE 2% [Suspect]
     Active Substance: LIDOCAINE
     Indication: ANAESTHESIA PROCEDURE
  2. ACETAZOLAMIDE. [Concomitant]
     Active Substance: ACETAZOLAMIDE
     Route: 048
  3. LIDOCAINE 2% [Suspect]
     Active Substance: LIDOCAINE
     Indication: TRABECULECTOMY
  4. TIMOLOL. [Concomitant]
     Active Substance: TIMOLOL
  5. LIDOCAINE 2% [Suspect]
     Active Substance: LIDOCAINE

REACTIONS (9)
  - Incorrect route of drug administration [None]
  - Hypotension [Recovered/Resolved]
  - Procedural complication [Unknown]
  - Loss of consciousness [Recovered/Resolved]
  - Bradycardia [Recovered/Resolved]
  - Brain stem syndrome [None]
  - Apnoea [Unknown]
  - Respiratory arrest [Unknown]
  - Unresponsive to stimuli [None]

NARRATIVE: CASE EVENT DATE: 201212
